FAERS Safety Report 7537222-7 (Version None)
Quarter: 2011Q2

REPORT INFORMATION
  Report Type: 
  Country: None (occurrence: None)
  Receive Date: 20110609
  Receipt Date: 20110601
  Transmission Date: 20111010
  Serious: Yes (Hospitalization)
  Sender: FDA-Public Use
  Company Number: NL-TEVA-285105ISR

PATIENT
  Sex: Female
  Weight: 60 kg

DRUGS (2)
  1. METFFORMIN HYDROCHLORIDE [Concomitant]
     Dosage: 2000 MILLIGRAM;
     Dates: start: 20060512
  2. CODEINE SULFATE [Suspect]
     Indication: COUGH
     Dosage: 10 MILLIGRAM;
     Dates: start: 20110414, end: 20110419

REACTIONS (1)
  - RENAL FAILURE ACUTE [None]
